FAERS Safety Report 9553588 (Version 1)
Quarter: 2013Q3

REPORT INFORMATION
  Report Type: Spontaneous
  Country: US (occurrence: None)
  Receive Date: 20130816
  Receipt Date: 20130816
  Transmission Date: 20140515
  Serious: No
  Sender: FDA-Public Use
  Company Number: US-012273

PATIENT
  Age: 66 Year
  Sex: Female
  Weight: 58.97 kg

DRUGS (4)
  1. PICO-SALAX [Suspect]
     Indication: BOWEL PREPARATION
     Dates: start: 20130319
  2. PRIMIDONE [Concomitant]
  3. LORATADINE [Concomitant]
  4. PSEUDOEPHEDRINE [Concomitant]

REACTIONS (2)
  - Treatment noncompliance [None]
  - No adverse event [None]
